FAERS Safety Report 4986841-0 (Version None)
Quarter: 2006Q2

REPORT INFORMATION
  Report Type: 
  Country: None (occurrence: None)
  Receive Date: 20060428
  Receipt Date: 20051020
  Transmission Date: 20061013
  Serious: Yes (Hospitalization, Disabling)
  Sender: FDA-Public Use
  Company Number: US-MERCK-0602USA00332

PATIENT
  Age: 62 Year
  Sex: Female
  Weight: 155 kg

DRUGS (2)
  1. VIOXX [Suspect]
     Indication: BACK PAIN
     Route: 048
     Dates: start: 19991111, end: 20030410
  2. VIOXX [Suspect]
     Indication: ARTHRALGIA
     Route: 048
     Dates: start: 19991111, end: 20030410

REACTIONS (9)
  - ADVERSE EVENT [None]
  - CHEST PAIN [None]
  - DYSPNOEA [None]
  - GALLBLADDER DISORDER [None]
  - HEART RATE IRREGULAR [None]
  - INTERVERTEBRAL DISC PROTRUSION [None]
  - NAIL INFECTION [None]
  - NEUROPATHY [None]
  - PALPITATIONS [None]
